FAERS Safety Report 8031422 (Version 2)
Quarter: 2012Q4

REPORT INFORMATION
  Report Type: 
  Country: FR (occurrence: FR)
  Receive Date: 20110712
  Receipt Date: 20121017
  Transmission Date: 20130627
  Serious: Yes (Other)
  Sender: FDA-Public Use
  Company Number: PHHY2011FR59113

PATIENT
  Age: 35 Year
  Sex: Male
  Weight: 100 kg

DRUGS (5)
  1. TRILEPTAL [Suspect]
     Indication: AFFECTIVE DISORDER
     Dosage: 300 mg, daily
     Dates: start: 20110131
  2. TRILEPTAL [Suspect]
     Dosage: 150 mg, daily
  3. RISPERIDONE [Concomitant]
     Dosage: 15 mg, every 15 day
     Route: 030
     Dates: start: 20110131
  4. LOXAPAC [Concomitant]
  5. RIVOTRIL [Concomitant]
     Dosage: 1 DF, QD

REACTIONS (1)
  - Dysphemia [Recovering/Resolving]
